FAERS Safety Report 23220719 (Version 2)
Quarter: 2023Q4

REPORT INFORMATION
  Report Type: Report from Study
  Country: GB (occurrence: GB)
  Receive Date: 20231123
  Receipt Date: 20231128
  Transmission Date: 20240109
  Serious: Yes (Other)
  Sender: FDA-Public Use
  Company Number: GB-002147023-NVSC2023GB246307

PATIENT
  Sex: Female

DRUGS (1)
  1. MAYZENT [Suspect]
     Active Substance: SIPONIMOD
     Indication: Multiple sclerosis
     Dosage: 2 MG, QD (28 TABLET 2 X 14 TABLETS)
     Route: 048
     Dates: start: 20230804

REACTIONS (1)
  - Mental impairment [Recovering/Resolving]

NARRATIVE: CASE EVENT DATE: 20231101
